FAERS Safety Report 8758384 (Version 1)
Quarter: 2012Q4

REPORT INFORMATION
  Report Type: Spontaneous
  Country: US (occurrence: None)
  Receive Date: 20120828
  Receipt Date: 20120828
  Transmission Date: 20130627
  Serious: Yes (Life-Threatening)
  Sender: FDA-Public Use
  Company Number: None

PATIENT
  Age: 81 Year
  Sex: Female
  Weight: 86.18 kg

DRUGS (1)
  1. PRADAXA [Suspect]
     Indication: ANTICOAGULANT THERAPY
     Dosage: Never used
     Route: 048
     Dates: start: 20120205, end: 20120205

REACTIONS (4)
  - Asthenia [None]
  - Gait disturbance [None]
  - Pallor [None]
  - Rectal haemorrhage [None]
